FAERS Safety Report 5420477-2 (Version None)
Quarter: 2007Q3

REPORT INFORMATION
  Report Type: 
  Country: None (occurrence: None)
  Receive Date: 20070821
  Receipt Date: 20070815
  Transmission Date: 20080115
  Serious: Yes (Other)
  Sender: FDA-Public Use
  Company Number: PHFR2007GB02455

PATIENT
  Age: 75 Year
  Sex: Male

DRUGS (1)
  1. MELLARIL [Suspect]
     Indication: ANXIETY
     Dosage: UNK, UNK
     Route: 065

REACTIONS (4)
  - FALL [None]
  - INSOMNIA [None]
  - SOMNOLENCE [None]
  - TRANCE [None]
